FAERS Safety Report 4365381-6 (Version None)
Quarter: 2004Q2

REPORT INFORMATION
  Report Type: 
  Country: None (occurrence: None)
  Receive Date: 20040525
  Receipt Date: 20040507
  Transmission Date: 20050107
  Serious: Yes (Hospitalization)
  Sender: FDA-Public Use
  Company Number: RENA-11030

PATIENT
  Age: 46 Year
  Sex: Male

DRUGS (8)
  1. PHOSBLOCK - 250 MG TABLET [Suspect]
     Indication: HYPERPHOSPHATAEMIA
     Dosage: 4.5 G QD PO
     Route: 048
     Dates: end: 20040415
  2. METHYLDOPA [Concomitant]
  3. NIFEDIPINE [Concomitant]
  4. CALCIUM POLYSTYRENE SULFONATE [Concomitant]
  5. SENNOSIDE [Concomitant]
  6. FAMOTIDINE [Concomitant]
  7. SODIUM FERROUS [Concomitant]
  8. ENALAPRIL MALEATE [Concomitant]

REACTIONS (5)
  - DIVERTICULAR PERFORATION [None]
  - DYSCHEZIA [None]
  - LARGE INTESTINE PERFORATION [None]
  - PERITONEAL ADHESIONS [None]
  - PERITONITIS [None]
